FAERS Safety Report 16798991 (Version 1)
Quarter: 2019Q3

REPORT INFORMATION
  Report Type: Spontaneous
  Country: US (occurrence: US)
  Receive Date: 20190912
  Receipt Date: 20190912
  Transmission Date: 20191005
  Serious: Yes (Other)
  Sender: FDA-Public Use
  Company Number: US-BAYER-2019-166585

PATIENT

DRUGS (2)
  1. AFRIN ORIGINAL [Suspect]
     Active Substance: OXYMETAZOLINE HYDROCHLORIDE
  2. NASOCORT [Concomitant]
     Active Substance: BUDESONIDE

REACTIONS (1)
  - Drug dependence [Unknown]
